FAERS Safety Report 5428694-2 (Version None)
Quarter: 2007Q3

REPORT INFORMATION
  Report Type: 
  Country: None (occurrence: None)
  Receive Date: 20070828
  Receipt Date: 20070817
  Transmission Date: 20080115
  Serious: Yes (Hospitalization)
  Sender: FDA-Public Use
  Company Number: US-SHR-US-2007-030834

PATIENT
  Age: 48 Year
  Sex: Female

DRUGS (1)
  1. BETASERON [Suspect]
     Dosage: 16 MIU, EVERY 2D
     Route: 058
     Dates: start: 19991111

REACTIONS (5)
  - INJECTION SITE PAIN [None]
  - INJECTION SITE RASH [None]
  - NEURALGIA [None]
  - OFF LABEL USE [None]
  - OVERDOSE [None]
